FAERS Safety Report 7956180-4 (Version None)
Quarter: 2011Q4

REPORT INFORMATION
  Report Type: 
  Country: None (occurrence: None)
  Receive Date: 20111205
  Receipt Date: 20111129
  Transmission Date: 20120403
  Serious: Yes (Hospitalization)
  Sender: FDA-Public Use
  Company Number: FR-EISAI INC-E2090-01573-SPO-FR

PATIENT
  Sex: Male

DRUGS (4)
  1. PROPRANOLOL [Concomitant]
     Route: 048
  2. ZONEGRAN [Suspect]
     Indication: EPILEPSY
     Route: 048
     Dates: start: 20090301, end: 20101201
  3. DEPAKENE [Concomitant]
     Indication: EPILEPSY
     Route: 048
  4. LAMICTAL [Concomitant]
     Indication: EPILEPSY
     Route: 048

REACTIONS (1)
  - EOSINOPHILIC COLITIS [None]
